FAERS Safety Report 14580973 (Version 1)
Quarter: 2018Q1

REPORT INFORMATION
  Report Type: Spontaneous
  Country: US (occurrence: US)
  Receive Date: 20180228
  Receipt Date: 20180228
  Transmission Date: 20180509
  Serious: No
  Sender: FDA-Public Use
  Company Number: US-PFIZER INC-2018080909

PATIENT
  Age: 37 Year
  Sex: Female
  Weight: 57.61 kg

DRUGS (1)
  1. ADVIL [Suspect]
     Active Substance: IBUPROFEN
     Indication: HEADACHE
     Dosage: 200MG CAPSULE BY MOUTH
     Route: 048
     Dates: start: 20180209, end: 20180209

REACTIONS (6)
  - Product storage error [Unknown]
  - Poor quality drug administered [Unknown]
  - Product odour abnormal [Unknown]
  - Pain in extremity [Unknown]
  - Feeling abnormal [Unknown]
  - Malaise [Unknown]

NARRATIVE: CASE EVENT DATE: 20180209
